FAERS Safety Report 11046006 (Version 3)
Quarter: 2016Q2

REPORT INFORMATION
  Report Type: Spontaneous
  Country: US (occurrence: US)
  Receive Date: 20150418
  Receipt Date: 20160530
  Transmission Date: 20160815
  Serious: Yes (Other)
  Sender: FDA-Public Use
  Company Number: US-JNJFOC-20150120052

PATIENT
  Age: 87 Year
  Sex: Male
  Weight: 90.72 kg

DRUGS (2)
  1. HALDOL [Suspect]
     Active Substance: HALOPERIDOL
     Indication: RELAXATION THERAPY
     Route: 042
     Dates: start: 20150121, end: 20150121
  2. HALDOL [Suspect]
     Active Substance: HALOPERIDOL
     Indication: AGGRESSION
     Route: 042
     Dates: start: 20150121, end: 20150121

REACTIONS (7)
  - Vomiting [Unknown]
  - Tremor [Unknown]
  - Activities of daily living impaired [Unknown]
  - Incorrect route of drug administration [Unknown]
  - Eating disorder [Unknown]
  - Dementia [Unknown]
  - Diarrhoea [Unknown]

NARRATIVE: CASE EVENT DATE: 20150121
